FAERS Safety Report 7238390-7 (Version None)
Quarter: 2011Q1

REPORT INFORMATION
  Report Type: 
  Country: None (occurrence: None)
  Receive Date: 20110119
  Receipt Date: 20110119
  Transmission Date: 20110831
  Serious: Yes (Other)
  Sender: FDA-Public Use
  Company Number: None

PATIENT
  Age: 80 Year
  Sex: Female
  Weight: 64.6829 kg

DRUGS (1)
  1. PRADAXA [Suspect]
     Indication: ATRIAL FIBRILLATION
     Dosage: 150 MG BID PO
     Route: 048
     Dates: start: 20101219, end: 20110115

REACTIONS (5)
  - DYSPHAGIA [None]
  - TEMPERATURE INTOLERANCE [None]
  - CHEST DISCOMFORT [None]
  - VISUAL IMPAIRMENT [None]
  - PHARYNGEAL OEDEMA [None]
